FAERS Safety Report 22371587 (Version 2)
Quarter: 2024Q1

REPORT INFORMATION
  Report Type: Report from Study
  Country: EC (occurrence: EC)
  Receive Date: 20230526
  Receipt Date: 20240207
  Transmission Date: 20240409
  Serious: Yes (Other)
  Sender: FDA-Public Use
  Company Number: EC-Merck Healthcare KGaA-9403003

PATIENT
  Age: 67 Year
  Sex: Female

DRUGS (2)
  1. CETUXIMAB [Suspect]
     Active Substance: CETUXIMAB
     Indication: Head and neck cancer
     Dosage: 500 MG/M2, 2/M (EVERY 15 DAY)
     Route: 042
     Dates: start: 20220801
  2. CAPECITABINE [Suspect]
     Active Substance: CAPECITABINE
     Indication: Head and neck cancer
     Dosage: 500 MG, UNKNOWN
     Route: 065

REACTIONS (5)
  - Haematemesis [Not Recovered/Not Resolved]
  - Underweight [Not Recovered/Not Resolved]
  - Decreased appetite [Not Recovered/Not Resolved]
  - Malaise [Not Recovered/Not Resolved]
  - Off label use [Not Recovered/Not Resolved]
